FAERS Safety Report 14539853 (Version 1)
Quarter: 2018Q1

REPORT INFORMATION
  Report Type: Spontaneous
  Country: DK (occurrence: DK)
  Receive Date: 20180216
  Receipt Date: 20180216
  Transmission Date: 20180509
  Serious: Yes (Hospitalization)
  Sender: FDA-Public Use
  Company Number: DK-SUNOVION-2018SUN000593

PATIENT

DRUGS (5)
  1. LATUDA [Suspect]
     Active Substance: LURASIDONE HYDROCHLORIDE
     Indication: SCHIZOPHRENIA
     Dosage: 74 MG, QD
     Route: 048
     Dates: start: 20170909, end: 20180115
  2. AVAMYS [Concomitant]
     Active Substance: FLUTICASONE FUROATE
     Indication: RHINITIS ALLERGIC
     Dosage: 2 DF, QD
     Route: 055
     Dates: start: 20170513
  3. DESOGESTREL [Concomitant]
     Active Substance: DESOGESTREL
     Indication: CONTRACEPTION
     Dosage: 75 MG, QD
     Route: 048
     Dates: start: 20140808
  4. QUETIAPIN [Concomitant]
     Active Substance: QUETIAPINE
     Indication: SCHIZOPHRENIA
     Dosage: 25 MG PRN
     Route: 048
     Dates: start: 20170905
  5. OMEPRAZOLE. [Concomitant]
     Active Substance: OMEPRAZOLE
     Indication: GASTROOESOPHAGEAL REFLUX DISEASE
     Dosage: 40 MG, QD
     Route: 048
     Dates: start: 20180104

REACTIONS (3)
  - Tardive dyskinesia [Recovering/Resolving]
  - Drug interaction [Unknown]
  - Dystonia [Recovering/Resolving]

NARRATIVE: CASE EVENT DATE: 201712
